FAERS Safety Report 16820441 (Version 4)
Quarter: 2021Q3

REPORT INFORMATION
  Report Type: Spontaneous
  Country: RU (occurrence: RU)
  Receive Date: 20190918
  Receipt Date: 20210704
  Transmission Date: 20211014
  Serious: Yes (Other)
  Sender: FDA-Public Use
  Company Number: RU-BEH-2019106936

PATIENT
  Age: 2 Year
  Sex: Female
  Weight: 17 kg

DRUGS (7)
  1. SOLU?MEDROL [Concomitant]
     Active Substance: METHYLPREDNISOLONE SODIUM SUCCINATE
     Indication: MILLER FISHER SYNDROME
     Dosage: 250 MILLIGRAM
     Route: 042
     Dates: start: 20190823, end: 20190825
  2. MEZYM FORTE [Concomitant]
     Active Substance: PANCRELIPASE
     Indication: DIARRHOEA
     Dosage: 1 TAB, TID
     Route: 048
     Dates: start: 20190826, end: 20190827
  3. NACL [Concomitant]
     Active Substance: SODIUM CHLORIDE
     Dosage: 100 MILLILITER
     Route: 042
     Dates: start: 20190823, end: 20190827
  4. CEFTRIAXON [Concomitant]
     Active Substance: CEFTRIAXONE
     Indication: WOUND
  5. DIOSMEKTIT [Concomitant]
     Indication: DIARRHOEA
     Dosage: 2 SACHE, BID
     Route: 048
     Dates: start: 20190825, end: 20190827
  6. CEFTRIAXON [Concomitant]
     Active Substance: CEFTRIAXONE
     Indication: BITE
     Dosage: 1000 MILLIGRAM
     Route: 042
     Dates: start: 20190823, end: 20190826
  7. PRIVIGEN [Suspect]
     Active Substance: HUMAN IMMUNOGLOBULIN G
     Indication: MILLER FISHER SYNDROME
     Dosage: 50 MILLILITER
     Route: 042
     Dates: start: 20190827, end: 20190827

REACTIONS (7)
  - Vomiting [Recovered/Resolved]
  - Headache [Recovered/Resolved]
  - Apathy [Recovered/Resolved]
  - Haematemesis [Recovered/Resolved]
  - Chills [Recovered/Resolved]
  - Somnolence [Recovered/Resolved]
  - Pyrexia [Recovered/Resolved]

NARRATIVE: CASE EVENT DATE: 20190827
